FAERS Safety Report 12411067 (Version 1)
Quarter: 2016Q2

REPORT INFORMATION
  Report Type: Spontaneous
  Country: US (occurrence: None)
  Receive Date: 20160526
  Receipt Date: 20160526
  Transmission Date: 20160815
  Serious: Yes (Hospitalization, Other)
  Sender: FDA-Public Use
  Company Number: None

PATIENT
  Age: 37 Year
  Sex: Female
  Weight: 68.04 kg

DRUGS (10)
  1. CALCIUM CITRATE [Concomitant]
     Active Substance: CALCIUM CITRATE
  2. ONFI [Concomitant]
     Active Substance: CLOBAZAM
  3. ONFI [Suspect]
     Active Substance: CLOBAZAM
     Indication: SEIZURE
     Dosage: 10 MG NOW I AM TAKING 5 MG Q12; I WAS TAKING 15 MG Q12 PO
     Route: 048
     Dates: start: 201311
  4. COMPOUNDED KEPPRA [Concomitant]
  5. IRON GLYCINATE [Concomitant]
  6. ARMOUS THYROID [Concomitant]
  7. KEPPRA [Concomitant]
     Active Substance: LEVETIRACETAM
  8. VITAMIN D3 [Concomitant]
     Active Substance: CHOLECALCIFEROL
  9. B6 [Concomitant]
     Active Substance: PYRIDOXINE HYDROCHLORIDE
  10. LYPO GOLD [Concomitant]

REACTIONS (4)
  - Status epilepticus [None]
  - Rash [None]
  - Pruritus [None]
  - Seizure [None]

NARRATIVE: CASE EVENT DATE: 201505
